FAERS Safety Report 14054406 (Version 1)
Quarter: 2017Q4

REPORT INFORMATION
  Report Type: Spontaneous
  Country: US (occurrence: US)
  Receive Date: 20171006
  Receipt Date: 20171006
  Transmission Date: 20180321
  Serious: No
  Sender: FDA-Public Use
  Company Number: US-JNJFOC-20170916131

PATIENT
  Age: 76 Year
  Sex: Female
  Weight: 56.7 kg

DRUGS (2)
  1. MENS ROGAINE EXTRA STRENGTH [Suspect]
     Active Substance: MINOXIDIL
     Indication: HAIR GROWTH ABNORMAL
     Dosage: 1/2 CAPFUL
     Route: 061
     Dates: start: 201708
  2. MENS ROGAINE EXTRA STRENGTH [Suspect]
     Active Substance: MINOXIDIL
     Route: 061

REACTIONS (5)
  - Overdose [Unknown]
  - Product quality issue [Unknown]
  - Expired product administered [Unknown]
  - Product use issue [Unknown]
  - Off label use [Unknown]
